FAERS Safety Report 6193068-6 (Version None)
Quarter: 2009Q2

REPORT INFORMATION
  Report Type: 
  Country: None (occurrence: None)
  Receive Date: 20090518
  Receipt Date: 20090508
  Transmission Date: 20091009
  Serious: Yes (Hospitalization)
  Sender: FDA-Public Use
  Company Number: US-ABBOTT-09P-163-0572725-00

PATIENT
  Sex: Female
  Weight: 108.96 kg

DRUGS (7)
  1. HUMIRA [Suspect]
     Indication: CROHN'S DISEASE
     Route: 058
     Dates: start: 20090305
  2. HEPARIN [Suspect]
     Indication: THROMBOSIS
  3. PREDNISONE [Concomitant]
     Indication: CROHN'S DISEASE
     Dates: start: 20060101
  4. ZANTAC [Concomitant]
     Indication: GASTRIC DISORDER
  5. LAIDA [Concomitant]
     Indication: CROHN'S DISEASE
     Route: 048
  6. TYLENOL [Concomitant]
     Indication: DRUG USE FOR UNKNOWN INDICATION
  7. CELEXA [Concomitant]
     Indication: DEPRESSION

REACTIONS (5)
  - NODULE ON EXTREMITY [None]
  - PAIN [None]
  - PULMONARY EMBOLISM [None]
  - THROMBOSIS [None]
  - URTICARIA [None]
